FAERS Safety Report 7643857-3 (Version None)
Quarter: 2011Q3

REPORT INFORMATION
  Report Type: 
  Country: None (occurrence: None)
  Receive Date: 20110729
  Receipt Date: 20100819
  Transmission Date: 20111222
  Serious: No
  Sender: FDA-Public Use
  Company Number: US-GLAXOSMITHKLINE-A0877788A

PATIENT
  Age: 55 Year
  Sex: Male

DRUGS (1)
  1. IMITREX [Suspect]
     Route: 048
     Dates: start: 20080113

REACTIONS (2)
  - HEADACHE [None]
  - THERAPEUTIC RESPONSE DECREASED [None]
